FAERS Safety Report 10188123 (Version 2)
Quarter: 2014Q2

REPORT INFORMATION
  Report Type: Spontaneous
  Country: JP (occurrence: JP)
  Receive Date: 20140522
  Receipt Date: 20140605
  Transmission Date: 20141212
  Serious: Yes (Other)
  Sender: FDA-Public Use
  Company Number: JP-PFIZER INC-2014135215

PATIENT
  Age: 24 Month
  Sex: 0
  Weight: 10 kg

DRUGS (1)
  1. CARDENALIN [Suspect]
     Dosage: UNK
     Route: 048
     Dates: end: 20140519

REACTIONS (1)
  - Renal impairment [Unknown]
